FAERS Safety Report 10233681 (Version 1)
Quarter: 2014Q2

REPORT INFORMATION
  Report Type: Spontaneous
  Country: US (occurrence: US)
  Receive Date: 20140612
  Receipt Date: 20140612
  Transmission Date: 20141212
  Serious: No
  Sender: FDA-Public Use
  Company Number: US-B.I. PHARMACEUTICALS,INC./RIDGEFIELD-2014-BI-24649BP

PATIENT
  Sex: Female

DRUGS (15)
  1. FLOMAX CAPSULES [Suspect]
     Indication: PRODUCT USED FOR UNKNOWN INDICATION
     Route: 065
  2. ASPIRIN [Concomitant]
     Route: 065
  3. SYNTHROID [Concomitant]
     Indication: THYROID DISORDER
     Dosage: 25 MCG
     Route: 065
  4. METOPROLOL [Concomitant]
     Indication: BLOOD PRESSURE
     Dosage: 50 MG
     Route: 065
  5. METOPROLOL [Concomitant]
     Indication: HEART RATE
  6. LASIX [Concomitant]
     Indication: DIURETIC THERAPY
     Route: 065
  7. POTASSIUM CHLORIDE [Concomitant]
     Dosage: 20 MEQ
     Route: 065
  8. AMIODARONE HCL [Concomitant]
     Indication: TACHYCARDIA
     Route: 065
  9. OMEPRAZOLE [Concomitant]
     Indication: GASTROOESOPHAGEAL REFLUX DISEASE
     Dosage: 20 MG
     Route: 065
  10. VITAMIN B12 [Concomitant]
     Dosage: 428.5714 MG
     Route: 065
  11. VITAMIN [Concomitant]
     Indication: EYE DISORDER
     Dosage: 1 ANZ
     Route: 065
  12. METAMUCIL [Concomitant]
     Route: 065
  13. NEURONTIN [Concomitant]
     Route: 065
  14. HYDROCODONE-ACETAMINOPHEN [Concomitant]
     Dosage: DOSE PER APPLICATION :5-325
     Route: 065
  15. LIDODERM [Concomitant]
     Indication: NEURALGIA
     Dosage: FORMULATION:PATCH
     Route: 065

REACTIONS (1)
  - Blood pressure decreased [Unknown]
